FAERS Safety Report 17982252 (Version 6)
Quarter: 2022Q4

REPORT INFORMATION
  Report Type: Spontaneous
  Country: US (occurrence: US)
  Receive Date: 20200706
  Receipt Date: 20221010
  Transmission Date: 20230113
  Serious: Yes (Other)
  Sender: FDA-Public Use
  Company Number: US-GILEAD-2020-0478642

PATIENT
  Age: 59 Year
  Sex: Male
  Weight: 97.052 kg

DRUGS (20)
  1. TRUVADA [Suspect]
     Active Substance: EMTRICITABINE\TENOFOVIR DISOPROXIL FUMARATE
     Indication: HIV infection
     Dosage: UNK
     Route: 048
     Dates: start: 200701, end: 20161031
  2. TRUVADA [Suspect]
     Active Substance: EMTRICITABINE\TENOFOVIR DISOPROXIL FUMARATE
     Dosage: UNK
     Route: 048
     Dates: start: 20080304, end: 20161027
  3. ASPIRIN [Concomitant]
     Active Substance: ASPIRIN
  4. PRAVASTATIN [Concomitant]
     Active Substance: PRAVASTATIN
  5. APTIVUS [Concomitant]
     Active Substance: TIPRANAVIR
  6. ISENTRESS [Concomitant]
     Active Substance: RALTEGRAVIR POTASSIUM
  7. NORVIR [Concomitant]
     Active Substance: RITONAVIR
  8. PREZCOBIX [Concomitant]
     Active Substance: COBICISTAT\DARUNAVIR ETHANOLATE
  9. PREZISTA [Concomitant]
     Active Substance: DARUNAVIR ETHANOLATE
  10. RETROVIR [Concomitant]
     Active Substance: ZIDOVUDINE
  11. TIVICAY [Concomitant]
     Active Substance: DOLUTEGRAVIR SODIUM
  12. TRIUMEQ [Concomitant]
     Active Substance: ABACAVIR SULFATE\DOLUTEGRAVIR SODIUM\LAMIVUDINE
  13. AVLOSULFON [Concomitant]
     Active Substance: DAPSONE
  14. AZITHROMYCIN [Concomitant]
     Active Substance: AZITHROMYCIN
  15. PENTAMIDINE [Concomitant]
     Active Substance: PENTAMIDINE
  16. ALUPENT [Concomitant]
     Active Substance: METAPROTERENOL SULFATE
  17. METAPROTERENOL POLISTIREX [Concomitant]
  18. PROAIR BRONQUIAL [Concomitant]
  19. CLARITIN [Concomitant]
     Active Substance: LORATADINE
  20. CLINDAMYCIN HYDROCHLORIDE [Concomitant]
     Active Substance: CLINDAMYCIN HYDROCHLORIDE

REACTIONS (9)
  - Multiple fractures [Recovered/Resolved]
  - Osteoporosis [Not Recovered/Not Resolved]
  - Tooth loss [Unknown]
  - Bone density decreased [Unknown]
  - Radius fracture [Recovered/Resolved]
  - Pain [Unknown]
  - Emotional distress [Unknown]
  - Osteopenia [Not Recovered/Not Resolved]
  - Hand fracture [Not Recovered/Not Resolved]

NARRATIVE: CASE EVENT DATE: 20150420
